FAERS Safety Report 10188714 (Version 1)
Quarter: 2014Q2

REPORT INFORMATION
  Report Type: Spontaneous
  Country: JP (occurrence: JP)
  Receive Date: 20140522
  Receipt Date: 20140522
  Transmission Date: 20141212
  Serious: Yes (Other)
  Sender: FDA-Public Use
  Company Number: CHPA2014JP005825

PATIENT
  Age: 59 Year
  Sex: Female

DRUGS (2)
  1. PURSENNID [Suspect]
     Indication: OFF LABEL USE
  2. PURSENNID [Suspect]
     Indication: DIARRHOEA
     Dosage: 4 DF, UNK
     Route: 048

REACTIONS (1)
  - Urinary retention [Recovered/Resolved]
